FAERS Safety Report 11848398 (Version 2)
Quarter: 2016Q4

REPORT INFORMATION
  Report Type: Report from Study
  Country: US (occurrence: US)
  Receive Date: 20151217
  Receipt Date: 20161014
  Transmission Date: 20170206
  Serious: No
  Sender: FDA-Public Use
  Company Number: US-AMGEN-USASL2015132314

PATIENT
  Age: 63 Year
  Sex: Female

DRUGS (1)
  1. ENBREL [Suspect]
     Active Substance: ETANERCEPT
     Indication: RHEUMATOID ARTHRITIS
     Dosage: 50 MG, QWK
     Route: 065
     Dates: start: 2008, end: 201609

REACTIONS (4)
  - Malaise [Unknown]
  - Pain [Unknown]
  - Cough [Unknown]
  - Drug dose omission [Unknown]

NARRATIVE: CASE EVENT DATE: 201511
